FAERS Safety Report 25448245 (Version 2)
Quarter: 2025Q2

REPORT INFORMATION
  Report Type: Spontaneous
  Country: US (occurrence: US)
  Receive Date: 20250617
  Receipt Date: 20250623
  Transmission Date: 20250717
  Serious: Yes (Hospitalization, Other)
  Sender: BRISTOL-MYERS SQUIBB COMPANY
  Company Number: US-BRISTOL-MYERS SQUIBB COMPANY-2025-085099

PATIENT
  Age: 58 Year
  Sex: Female
  Weight: 72.0 kg

DRUGS (8)
  1. ELIQUIS [Suspect]
     Active Substance: APIXABAN
     Indication: Deep vein thrombosis
     Dates: start: 20250110
  2. BRENTUXIMAB VEDOTIN [Suspect]
     Active Substance: BRENTUXIMAB VEDOTIN
     Indication: Peripheral T-cell lymphoma unspecified
     Dosage: 1.8 MG/KG CYCLIC (ON DAY 1 OF EACH CYCLE)
     Route: 042
     Dates: start: 20240111, end: 20250220
  3. CYCLOPHOSPHAMIDE [Suspect]
     Active Substance: CYCLOPHOSPHAMIDE
     Indication: Peripheral T-cell lymphoma unspecified
     Route: 042
     Dates: start: 20240111
  4. DOXORUBICIN [Suspect]
     Active Substance: DOXORUBICIN
     Indication: Peripheral T-cell lymphoma unspecified
     Route: 042
     Dates: start: 20240111
  5. ETOPOSIDE [Suspect]
     Active Substance: ETOPOSIDE
     Indication: Peripheral T-cell lymphoma unspecified
     Route: 048
     Dates: start: 20240111, end: 20250201
  6. ETOPOSIDE [Suspect]
     Active Substance: ETOPOSIDE
     Route: 042
  7. PREDNISONE [Suspect]
     Active Substance: PREDNISONE
     Indication: Peripheral T-cell lymphoma unspecified
     Dosage: 100 MG/DAILY, DAY 1 - DAY 5,  1 CYCLE = 21 DAYS)
     Dates: start: 20240111
  8. NEULASTA [Concomitant]
     Active Substance: PEGFILGRASTIM
     Indication: Product used for unknown indication
     Dates: end: 20250203

REACTIONS (12)
  - Fatigue [Recovered/Resolved]
  - Anaemia [Unknown]
  - Dizziness [Unknown]
  - Hypotension [Unknown]
  - Neutropenia [Unknown]
  - Urinary retention [Unknown]
  - Thrombocytopenia [Unknown]
  - Pancytopenia [Unknown]
  - Troponin increased [Unknown]
  - Pyrexia [Unknown]
  - Oedema peripheral [Unknown]
  - Urinary tract infection [Unknown]

NARRATIVE: CASE EVENT DATE: 20250208
